FAERS Safety Report 21274444 (Version 1)
Quarter: 2022Q3

REPORT INFORMATION
  Report Type: Spontaneous
  Country: US (occurrence: None)
  Receive Date: 20220830
  Receipt Date: 20220830
  Transmission Date: 20221027
  Serious: No
  Sender: FDA-Public Use
  Company Number: None

PATIENT
  Age: 67 Year
  Sex: Female
  Weight: 94.5 kg

DRUGS (1)
  1. INAPSINE [Suspect]
     Active Substance: DROPERIDOL

REACTIONS (2)
  - Restless legs syndrome [None]
  - Agitation [None]

NARRATIVE: CASE EVENT DATE: 20220820
